FAERS Safety Report 9458298 (Version 1)
Quarter: 2013Q3

REPORT INFORMATION
  Report Type: Report from Study
  Country: FR (occurrence: FR)
  Receive Date: 20130814
  Receipt Date: 20130814
  Transmission Date: 20140515
  Serious: Yes (Death)
  Sender: FDA-Public Use
  Company Number: FR-BAXTER-2013BAX031733

PATIENT
  Sex: Female

DRUGS (5)
  1. HOLOXAN 2 G, LYOPHILISAT POUR SOLUTION INJECTABLE [Suspect]
     Indication: UTERINE LEIOMYOSARCOMA
     Dosage: 3 G/M^2 ON DAYS 1 AND 2
     Route: 065
  2. UROMITEXAN 5 G/50 ML, SOLUTION INJECTABLE POUR PERFUSION EN FLACON [Suspect]
     Indication: UTERINE LEIOMYOSARCOMA
     Dosage: ON DAYS 1 AND 2
     Route: 065
  3. DOXORUBICIN [Suspect]
     Indication: UTERINE LEIOMYOSARCOMA
     Dosage: ON DAY 1
     Route: 065
  4. CISPLATIN [Suspect]
     Indication: UTERINE LEIOMYOSARCOMA
     Dosage: ON DAY 3
     Route: 065
  5. G-CSF [Concomitant]
     Indication: UTERINE LEIOMYOSARCOMA

REACTIONS (1)
  - Septic shock [Fatal]
